FAERS Safety Report 4579255-9 (Version None)
Quarter: 2005Q1

REPORT INFORMATION
  Report Type: 
  Country: None (occurrence: None)
  Receive Date: 20050210
  Receipt Date: 20050210
  Transmission Date: 20050727
  Serious: No
  Sender: FDA-Public Use
  Company Number: None

PATIENT
  Sex: Male
  Weight: 80 kg

DRUGS (5)
  1. ALL-TRANS RETINOIC ACID [Suspect]
     Dosage: 45 MG/M2 PO QD DAILY FOR 21 DAYS Q 21 DAYS
     Route: 048
     Dates: start: 20041231
  2. DAUNOMYCIN [Suspect]
     Dosage: 50 MG/M2 IVP QD DAILY FOR DAYS STARTING ON DAY 3 Q 21 DAYS
     Route: 040
  3. CYTARABINE [Suspect]
     Dosage: 200 MG/M2 CIV DAILY FOR 7 DAYS STARTING ON DAY 3, Q 21 D
  4. CYTARABINE [Suspect]
     Dosage: 200 MG/M2 CIV DAILY FOR 7 DAYS STARTING ON DAY 3, Q 21 D
  5. ARSENIC TRIOXIDE [Suspect]
     Dosage: 0.15 MG/KG IV OVER 2 HOURS QD DAY 1,3,5 EVERY WEEK FOR 5 WK Q 42 D
     Route: 042

REACTIONS (3)
  - APPENDICITIS [None]
  - APPENDIX DISORDER [None]
  - GANGRENE [None]
